FAERS Safety Report 15567126 (Version 5)
Quarter: 2019Q2

REPORT INFORMATION
  Report Type: Report from Study
  Country: ES (occurrence: ES)
  Receive Date: 20181030
  Receipt Date: 20190604
  Transmission Date: 20190711
  Serious: Yes (Hospitalization)
  Sender: FDA-Public Use
  Company Number: ES-JNJFOC-20181036246

PATIENT
  Age: 21 Year
  Sex: Male
  Weight: 66 kg

DRUGS (19)
  1. USTEKINUMAB [Suspect]
     Active Substance: USTEKINUMAB
     Indication: CROHN^S DISEASE
     Route: 058
     Dates: start: 20180214
  2. PARACETAMOL [Concomitant]
     Active Substance: ACETAMINOPHEN
     Indication: FISTULA OF SMALL INTESTINE
     Route: 042
     Dates: start: 20180905, end: 20180910
  3. PREDNISONE. [Concomitant]
     Active Substance: PREDNISONE
     Indication: CROHN^S DISEASE
     Route: 048
     Dates: start: 20181112, end: 20181118
  4. METAMIZOLE [Concomitant]
     Active Substance: METAMIZOLE
     Indication: FISTULA OF SMALL INTESTINE
     Route: 042
     Dates: start: 20180905, end: 20180910
  5. METILPREDNISOLONE [Concomitant]
     Active Substance: METHYLPREDNISOLONE
     Indication: FISTULA OF SMALL INTESTINE
     Route: 042
     Dates: start: 20180906, end: 20180910
  6. PREDNISONE. [Concomitant]
     Active Substance: PREDNISONE
     Indication: CROHN^S DISEASE
     Route: 048
     Dates: start: 20181126, end: 20181202
  7. MEROPENEM. [Concomitant]
     Active Substance: MEROPENEM
     Indication: FISTULA OF SMALL INTESTINE
     Route: 042
     Dates: start: 20180906, end: 20180910
  8. PREDNISONE. [Concomitant]
     Active Substance: PREDNISONE
     Indication: CROHN^S DISEASE
     Route: 048
     Dates: start: 20181108, end: 20181111
  9. PREDNISONE. [Concomitant]
     Active Substance: PREDNISONE
     Indication: CROHN^S DISEASE
     Route: 048
     Dates: start: 20181203, end: 20181209
  10. PREDNISONE. [Concomitant]
     Active Substance: PREDNISONE
     Indication: CROHN^S DISEASE
     Route: 048
     Dates: start: 20181210
  11. METOCLOPRAMIDE. [Concomitant]
     Active Substance: METOCLOPRAMIDE
     Indication: FISTULA OF SMALL INTESTINE
     Route: 042
     Dates: start: 20180905, end: 20180910
  12. METRONIDAZOLE. [Concomitant]
     Active Substance: METRONIDAZOLE
     Indication: FISTULA OF SMALL INTESTINE
     Route: 042
     Dates: start: 20180905, end: 20180910
  13. OSVICAL D [Concomitant]
     Indication: FISTULA OF SMALL INTESTINE
     Route: 048
     Dates: start: 20180910
  14. CEFIXIME. [Concomitant]
     Active Substance: CEFIXIME
     Indication: FISTULA OF SMALL INTESTINE
     Route: 065
     Dates: start: 20180910, end: 20180917
  15. PREDNISONE. [Concomitant]
     Active Substance: PREDNISONE
     Indication: CROHN^S DISEASE
     Route: 048
     Dates: start: 20181119, end: 20181125
  16. USTEKINUMAB [Suspect]
     Active Substance: USTEKINUMAB
     Indication: CROHN^S DISEASE
     Route: 058
     Dates: start: 20171219
  17. CLEXANE [Concomitant]
     Active Substance: ENOXAPARIN SODIUM
     Indication: FISTULA OF SMALL INTESTINE
     Route: 058
     Dates: start: 20180905, end: 20180910
  18. CEFTRIAXONE. [Concomitant]
     Active Substance: CEFTRIAXONE
     Indication: FISTULA OF SMALL INTESTINE
     Route: 042
     Dates: start: 20180905, end: 20180906
  19. FOLIC ACID. [Concomitant]
     Active Substance: FOLIC ACID
     Indication: FOLATE DEFICIENCY
     Route: 048
     Dates: start: 20180514

REACTIONS (1)
  - Abdominal abscess [Recovered/Resolved]

NARRATIVE: CASE EVENT DATE: 20181005
